FAERS Safety Report 19885880 (Version 1)
Quarter: 2021Q3

REPORT INFORMATION
  Report Type: Spontaneous
  Country: AR (occurrence: AR)
  Receive Date: 20210927
  Receipt Date: 20210927
  Transmission Date: 20211014
  Serious: Yes (Life-Threatening)
  Sender: FDA-Public Use
  Company Number: AR-PFIZER INC-202101198258

PATIENT
  Age: 71 Year
  Sex: Male

DRUGS (1)
  1. SUTENT [Suspect]
     Active Substance: SUNITINIB MALATE
     Indication: METASTATIC RENAL CELL CARCINOMA
     Dosage: 50 MG, DAILY (WITHOUT REST)
     Dates: start: 20210723

REACTIONS (2)
  - Off label use [Not Recovered/Not Resolved]
  - Near death experience [Not Recovered/Not Resolved]

NARRATIVE: CASE EVENT DATE: 20210723
